FAERS Safety Report 9702982 (Version 1)
Quarter: 2013Q4

REPORT INFORMATION
  Report Type: Spontaneous
  Country: US (occurrence: US)
  Receive Date: 20131122
  Receipt Date: 20131122
  Transmission Date: 20140711
  Serious: Yes (Hospitalization, Other)
  Sender: FDA-Public Use
  Company Number: US-BAXTER-2013BAX045723

PATIENT
  Age: 53 Year
  Sex: Male

DRUGS (4)
  1. DIANEAL LOW CALCIUM [Suspect]
     Indication: PERITONEAL DIALYSIS
     Route: 033
     Dates: start: 2011, end: 201303
  2. DIANEAL LOW CALCIUM [Suspect]
     Route: 033
     Dates: start: 201303
  3. DIANEAL LOW CALCIUM [Suspect]
     Indication: PERITONEAL DIALYSIS
     Route: 033
     Dates: start: 2011, end: 201303
  4. DIANEAL LOW CALCIUM [Suspect]
     Route: 033
     Dates: start: 201303

REACTIONS (2)
  - Inguinal hernia [Recovered/Resolved]
  - Peritonitis bacterial [Recovered/Resolved]
